FAERS Safety Report 18087091 (Version 1)
Quarter: 2020Q3

REPORT INFORMATION
  Report Type: Spontaneous
  Country: US (occurrence: US)
  Receive Date: 20200729
  Receipt Date: 20200729
  Transmission Date: 20201103
  Serious: No
  Sender: FDA-Public Use
  Company Number: None

PATIENT
  Age: 52 Year
  Sex: Female
  Weight: 85.05 kg

DRUGS (1)
  1. ART NATURALS UNSCENTED [Suspect]
     Active Substance: ALCOHOL
     Indication: PRODUCT USED FOR UNKNOWN INDICATION
     Route: 061
     Dates: start: 20200420, end: 20200701

REACTIONS (2)
  - Application site burn [None]
  - Product odour abnormal [None]

NARRATIVE: CASE EVENT DATE: 20200430
